FAERS Safety Report 5165123-0 (Version None)
Quarter: 2006Q4

REPORT INFORMATION
  Report Type: 
  Country: None (occurrence: None)
  Receive Date: 20061127
  Receipt Date: 20061111
  Transmission Date: 20070319
  Serious: Yes (Hospitalization)
  Sender: FDA-Public Use
  Company Number: 15177

PATIENT
  Age: 53 Year
  Sex: Female

DRUGS (3)
  1. PACLITAXEL [Suspect]
     Indication: OVARIAN CANCER RECURRENT
     Dosage: 80 MG/M2 ONCE IV
     Dates: start: 20051125
  2. DEXAMETHASONE [Concomitant]
  3. DIPHENHYDRAMINE HCL [Concomitant]

REACTIONS (1)
  - TUMOUR LYSIS SYNDROME [None]
